FAERS Safety Report 11182663 (Version 1)
Quarter: 2015Q2

REPORT INFORMATION
  Report Type: Spontaneous
  Country: CH (occurrence: IT)
  Receive Date: 20150611
  Receipt Date: 20150611
  Transmission Date: 20150821
  Serious: Yes (Other)
  Sender: FDA-Public Use
  Company Number: CH-LPDUSPRD-20150424

PATIENT
  Age: 37 Year
  Sex: Female

DRUGS (4)
  1. GADOVIST [Concomitant]
     Active Substance: GADOBUTROL
     Dosage: DOSE NOT PROVIDED
     Route: 065
     Dates: start: 20150514, end: 20150514
  2. FERINJECT [Suspect]
     Active Substance: FERRIC CARBOXYMALTOSE
     Dosage: 1000 MG
     Route: 042
     Dates: start: 20150514, end: 20150514
  3. TAZOCIN [Concomitant]
     Active Substance: PIPERACILLIN SODIUM\TAZOBACTAM SODIUM
     Dosage: 4.5 GM
     Route: 065
     Dates: start: 20150509, end: 20150515
  4. LEVOXACIN [Concomitant]
     Active Substance: LEVOFLOXACIN
     Dosage: DOSE NOT PROVIDED
     Route: 065
     Dates: start: 20150509, end: 20150514

REACTIONS (1)
  - Dermatitis bullous [Unknown]

NARRATIVE: CASE EVENT DATE: 20150514
